FAERS Safety Report 7971945-0 (Version None)
Quarter: 2011Q4

REPORT INFORMATION
  Report Type: 
  Country: None (occurrence: None)
  Receive Date: 20111212
  Receipt Date: 20111205
  Transmission Date: 20120403
  Serious: Yes (Other)
  Sender: FDA-Public Use
  Company Number: US-BRISTOL-MYERS SQUIBB COMPANY-16270134

PATIENT
  Age: 61 Year
  Sex: Male

DRUGS (1)
  1. ABILIFY [Suspect]
     Indication: PSYCHOTIC DISORDER
     Dates: start: 20111118

REACTIONS (6)
  - DEPRESSED MOOD [None]
  - ANGER [None]
  - IRRITABILITY [None]
  - DIZZINESS [None]
  - PARANOIA [None]
  - SUICIDAL IDEATION [None]
